FAERS Safety Report 14636403 (Version 1)
Quarter: 2018Q1

REPORT INFORMATION
  Report Type: Spontaneous
  Country: US (occurrence: US)
  Receive Date: 20180314
  Receipt Date: 20180314
  Transmission Date: 20180509
  Serious: No
  Sender: FDA-Public Use
  Company Number: US-GLENMARK PHARMACEUTICALS-2017GMK028782

PATIENT

DRUGS (1)
  1. MUPIROCIN. [Suspect]
     Active Substance: MUPIROCIN
     Indication: BACTERIAL RHINITIS
     Dosage: UNK UNK, TID
     Route: 045
     Dates: start: 20170828, end: 20170908

REACTIONS (5)
  - Lip infection [Recovered/Resolved]
  - Lip swelling [Recovered/Resolved]
  - Rhinorrhoea [Recovering/Resolving]
  - Product administered at inappropriate site [Unknown]
  - Drug prescribing error [Unknown]

NARRATIVE: CASE EVENT DATE: 20170828
